FAERS Safety Report 4891295-9 (Version None)
Quarter: 2006Q1

REPORT INFORMATION
  Report Type: 
  Country: None (occurrence: None)
  Receive Date: 20060123
  Receipt Date: 20060110
  Transmission Date: 20060701
  Serious: Yes (Hospitalization)
  Sender: FDA-Public Use
  Company Number: 108726ISR

PATIENT
  Age: 82 Year
  Sex: Male

DRUGS (2)
  1. CARBOPLATIN [Suspect]
     Indication: ADENOCARCINOMA
     Dosage: INTRAVENOUS (NOS)
     Route: 042
     Dates: start: 20050310, end: 20050609
  2. GEMCITABINE HYDROCHLORIDE [Suspect]
     Indication: ADENOCARCINOMA
     Dosage: INTRAVENOUS (NOS)
     Route: 042
     Dates: start: 20050310, end: 20050602

REACTIONS (1)
  - OEDEMA PERIPHERAL [None]
